FAERS Safety Report 9076158 (Version 1)
Quarter: 2013Q1

REPORT INFORMATION
  Report Type: Report from Study
  Country: US (occurrence: US)
  Receive Date: 20130129
  Receipt Date: 20130129
  Transmission Date: 20140127
  Serious: No
  Sender: FDA-Public Use
  Company Number: US-ABBOTT-12P-163-0927028-00

PATIENT
  Age: 55 None
  Sex: Female
  Weight: 94.89 kg

DRUGS (6)
  1. HUMIRA 40 MG/0.8 ML PEN [Suspect]
     Indication: RHEUMATOID ARTHRITIS
     Dates: start: 20120407, end: 20120407
  2. GOODYS [Concomitant]
     Indication: PAIN
  3. FOLIC ACID [Concomitant]
     Indication: VITAMIN SUPPLEMENTATION
  4. METHOTREXATE [Concomitant]
     Indication: RHEUMATOID ARTHRITIS
  5. METHYLPREDNISOLONE [Concomitant]
     Indication: PRODUCT USED FOR UNKNOWN INDICATION
  6. TRAMADOL [Concomitant]
     Indication: PAIN

REACTIONS (9)
  - Pruritus [Recovering/Resolving]
  - Rash [Recovering/Resolving]
  - Rash [Recovering/Resolving]
  - Fall [Recovered/Resolved]
  - Pain [Recovered/Resolved]
  - Injection site erythema [Recovering/Resolving]
  - Rash erythematous [Recovering/Resolving]
  - Rash pruritic [Recovering/Resolving]
  - Drug hypersensitivity [Unknown]
